FAERS Safety Report 12144715 (Version 1)
Quarter: 2016Q1

REPORT INFORMATION
  Report Type: Spontaneous
  Country: US (occurrence: None)
  Receive Date: 20160303
  Receipt Date: 20160303
  Transmission Date: 20160526
  Serious: Yes (Life-Threatening, Other)
  Sender: FDA-Public Use
  Company Number: None

PATIENT
  Age: 65 Year
  Sex: Female
  Weight: 70.31 kg

DRUGS (6)
  1. CENTRUM SILVER FOR WOMEN [Concomitant]
     Active Substance: MINERALS\VITAMINS
  2. VALSARTAN AND HYDROCHLOROTHIAZIDE [Concomitant]
     Active Substance: HYDROCHLOROTHIAZIDE\VALSARTAN
  3. CANDESARTAN [Concomitant]
     Active Substance: CANDESARTAN
  4. OXCARBAZEPINE 600 MG GLENMARK [Suspect]
     Active Substance: OXCARBAZEPINE
     Indication: TRIGEMINAL NEURALGIA
     Dosage: 600 MG, TWICE DAILY, TAKEN BY MOUTH
     Dates: start: 20160221, end: 20160229
  5. VITAMIN D [Concomitant]
     Active Substance: CHOLECALCIFEROL
  6. CLONAZEPAM 0.5 MG QUALITEST [Suspect]
     Active Substance: CLONAZEPAM
     Indication: ANXIETY
     Dosage: 0.5 MG AT BEDTIME, TAKEN BY MOUTH
     Dates: start: 20160221, end: 20160229

REACTIONS (16)
  - Decreased appetite [None]
  - Discomfort [None]
  - Feelings of worthlessness [None]
  - Somnolence [None]
  - Vertigo [None]
  - Thinking abnormal [None]
  - Dizziness [None]
  - Asthenia [None]
  - Fatigue [None]
  - Depression [None]
  - Crying [None]
  - Coordination abnormal [None]
  - Gait disturbance [None]
  - Feeling drunk [None]
  - Trigeminal neuralgia [None]
  - Poor quality sleep [None]

NARRATIVE: CASE EVENT DATE: 20160229
